FAERS Safety Report 18846941 (Version 1)
Quarter: 2021Q1

REPORT INFORMATION
  Report Type: Report from Study
  Country: US (occurrence: US)
  Receive Date: 20210203
  Receipt Date: 20210203
  Transmission Date: 20210419
  Serious: No
  Sender: FDA-Public Use
  Company Number: US-EXELIXIS-CABO-20034326

PATIENT
  Sex: Male

DRUGS (14)
  1. CLONIDINE. [Concomitant]
     Active Substance: CLONIDINE
  2. CABOMETYX [Suspect]
     Active Substance: CABOZANTINIB S-MALATE
     Dosage: 40 MG, QD
     Route: 048
  3. ONDANSETRON [Concomitant]
     Active Substance: ONDANSETRON
     Dosage: UNK
  4. CABOMETYX [Suspect]
     Active Substance: CABOZANTINIB S-MALATE
     Dosage: 60 MG, QD
     Route: 048
  5. APAP CODEINE [Concomitant]
     Active Substance: ACETAMINOPHEN\CODEINE PHOSPHATE
     Dosage: UNK
  6. OMEPRAZOLE. [Concomitant]
     Active Substance: OMEPRAZOLE
     Dosage: UNK
  7. LISINOPRIL/HCTZ [Concomitant]
     Active Substance: HYDROCHLOROTHIAZIDE\LISINOPRIL
     Dosage: UNK
  8. LOSARTAN K/HCTZ [Concomitant]
     Dosage: UNK
  9. TIMOLOL. [Concomitant]
     Active Substance: TIMOLOL
  10. DIPHENOXYLATE/ATROPINE [Concomitant]
     Active Substance: ATROPINE\DIPHENOXYLATE
  11. CABOMETYX [Suspect]
     Active Substance: CABOZANTINIB S-MALATE
     Indication: RENAL CANCER
     Dosage: 60 MG, QD
     Route: 048
     Dates: start: 20200904
  12. PREDNISOLONE. [Concomitant]
     Active Substance: PREDNISOLONE
     Dosage: UNK
  13. CLONAZEPAM. [Concomitant]
     Active Substance: CLONAZEPAM
     Dosage: UNK
  14. POLYMYXIN B SULFATE;TRIMETHOPRIM [Concomitant]
     Dosage: UNK

REACTIONS (12)
  - Nausea [Unknown]
  - Taste disorder [Unknown]
  - Diarrhoea [Unknown]
  - Dry skin [Unknown]
  - Abdominal pain upper [Unknown]
  - Anosmia [Unknown]
  - Dry mouth [Unknown]
  - Blood pressure increased [Unknown]
  - Decreased appetite [Unknown]
  - Headache [Unknown]
  - Stomatitis [Unknown]
  - Weight decreased [Unknown]
